FAERS Safety Report 9890243 (Version 1)
Quarter: 2014Q1

REPORT INFORMATION
  Report Type: Spontaneous
  Country: US (occurrence: US)
  Receive Date: 20140212
  Receipt Date: 20140212
  Transmission Date: 20141002
  Serious: No
  Sender: FDA-Public Use
  Company Number: US-BIOGENIDEC-2014BI012331

PATIENT
  Age: 46 Year
  Sex: Female

DRUGS (4)
  1. TECFIDERA [Suspect]
     Indication: MULTIPLE SCLEROSIS
     Route: 048
  2. TRIMETHOPRIM [Concomitant]
  3. TOPAMAX [Concomitant]
  4. SULFAMETHOXAZOLE-TMP DS [Concomitant]

REACTIONS (2)
  - Sinusitis [Unknown]
  - Cellulitis [Unknown]
